FAERS Safety Report 4622818-2 (Version None)
Quarter: 2005Q1

REPORT INFORMATION
  Report Type: 
  Country: None (occurrence: None)
  Receive Date: 20050328
  Receipt Date: 20050328
  Transmission Date: 20050727
  Serious: Yes (Hospitalization)
  Sender: FDA-Public Use
  Company Number: None

PATIENT
  Age: 75 Year
  Sex: Male

DRUGS (13)
  1. WARFARIN [Suspect]
     Dosage: 5MG  PO  QHS
     Route: 048
     Dates: start: 20050105, end: 20050121
  2. ENOXAPARIN SODIUM [Suspect]
     Dosage: 100MG SQ BID
     Route: 058
     Dates: start: 20050103, end: 20050121
  3. AMIODARONE [Concomitant]
  4. DIGOXIN [Concomitant]
  5. ASPIRIN [Concomitant]
  6. PRILOSEC [Concomitant]
  7. LISINOPRIL [Concomitant]
  8. ZOCOR [Concomitant]
  9. LOVENOX [Concomitant]
  10. COUMADIN [Concomitant]
  11. TEMAZEPAM [Concomitant]
  12. REGLAN [Concomitant]
  13. PERCOCET [Concomitant]

REACTIONS (6)
  - ABDOMINAL PAIN [None]
  - BEDRIDDEN [None]
  - HAEMATOCRIT DECREASED [None]
  - INTERNATIONAL NORMALISED RATIO INCREASED [None]
  - NAUSEA [None]
  - VOMITING [None]
